FAERS Safety Report 5772131-5 (Version None)
Quarter: 2008Q2

REPORT INFORMATION
  Report Type: 
  Country: None (occurrence: None)
  Receive Date: 20080613
  Receipt Date: 20080604
  Transmission Date: 20081010
  Serious: Yes (Death, Hospitalization)
  Sender: FDA-Public Use
  Company Number: US-ROCHE-562379

PATIENT
  Sex: Female

DRUGS (1)
  1. CAPECITABINE [Suspect]
     Dosage: ONE WEEK ON ONE WEEK OFF
     Route: 048
     Dates: start: 20071205, end: 20080308

REACTIONS (2)
  - BREAST CANCER METASTATIC [None]
  - PNEUMONIA [None]
